FAERS Safety Report 23701974 (Version 1)
Quarter: 2024Q2

REPORT INFORMATION
  Report Type: Spontaneous
  Country: CN (occurrence: CN)
  Receive Date: 20240403
  Receipt Date: 20240403
  Transmission Date: 20240716
  Serious: Yes (Hospitalization, Other)
  Sender: FDA-Public Use
  Company Number: CN-BAYER-2024A048618

PATIENT
  Age: 59 Year
  Sex: Male

DRUGS (6)
  1. AVELOX [Suspect]
     Active Substance: MOXIFLOXACIN HYDROCHLORIDE
     Indication: Bronchitis
     Dosage: 400 MG, QD
     Route: 048
     Dates: start: 20240318, end: 20240318
  2. AVELOX [Suspect]
     Active Substance: MOXIFLOXACIN HYDROCHLORIDE
     Indication: Anti-infective therapy
  3. CEFUROXIME AXETIL [Concomitant]
     Active Substance: CEFUROXIME AXETIL
     Indication: Bronchitis
     Dosage: 0.25 G, BID
     Route: 048
     Dates: start: 20240315, end: 20240317
  4. HERBALS\MENTHOL [Concomitant]
     Active Substance: HERBALS\MENTHOL
     Indication: Bronchitis
     Dosage: 6 G, TID
     Route: 048
     Dates: start: 20240315, end: 20240317
  5. AMLODIPINE BESYLATE [Concomitant]
     Active Substance: AMLODIPINE BESYLATE
     Indication: Blood pressure management
     Route: 048
  6. HYDROCHLOROTHIAZIDE [Concomitant]
     Active Substance: HYDROCHLOROTHIAZIDE
     Indication: Blood pressure management
     Route: 048

REACTIONS (37)
  - Anaphylactic shock [Recovering/Resolving]
  - Erythema [Recovering/Resolving]
  - Pruritus [Recovering/Resolving]
  - Lip swelling [Recovering/Resolving]
  - Hypoaesthesia oral [Recovering/Resolving]
  - Chest discomfort [Recovering/Resolving]
  - Tachypnoea [Recovering/Resolving]
  - Palpitations [Recovering/Resolving]
  - Nausea [Recovering/Resolving]
  - Abdominal distension [Recovering/Resolving]
  - Abdominal pain [Recovering/Resolving]
  - Hyperhidrosis [Recovering/Resolving]
  - Cold sweat [Recovering/Resolving]
  - Temperature intolerance [Recovering/Resolving]
  - Amaurosis [Recovering/Resolving]
  - Respiratory rate increased [Recovering/Resolving]
  - Blood pressure decreased [Recovering/Resolving]
  - Blood potassium decreased [Recovering/Resolving]
  - Blood lactic acid increased [Recovering/Resolving]
  - Blood creatinine increased [None]
  - Blood urea increased [None]
  - Blood glucose increased [Recovering/Resolving]
  - Fibrin D dimer increased [None]
  - Sinus tachycardia [Recovering/Resolving]
  - Platelet count increased [Recovering/Resolving]
  - Blood pH increased [Recovering/Resolving]
  - Haematochezia [None]
  - Blood immunoglobulin E increased [None]
  - Productive cough [None]
  - White blood cell count increased [None]
  - Neutrophil percentage increased [None]
  - C-reactive protein increased [None]
  - Blood uric acid increased [None]
  - Blood phosphorus increased [None]
  - Procalcitonin increased [None]
  - Pyrexia [None]
  - Low density lipoprotein increased [None]

NARRATIVE: CASE EVENT DATE: 20240318
